FAERS Safety Report 4569400-3 (Version None)
Quarter: 2005Q1

REPORT INFORMATION
  Report Type: 
  Country: None (occurrence: None)
  Receive Date: 20050203
  Receipt Date: 20050126
  Transmission Date: 20050727
  Serious: Yes (Other)
  Sender: FDA-Public Use
  Company Number: US-ROCHE-393900

PATIENT
  Age: 52 Year
  Sex: Male
  Weight: 86.2 kg

DRUGS (10)
  1. PEGASYS [Suspect]
     Indication: HEPATITIS C
     Dosage: STRENGTH: 180MCG/0.5ML
     Route: 058
     Dates: start: 20040826
  2. COPEGUS [Suspect]
     Indication: HEPATITIS C
     Route: 048
     Dates: start: 20040826
  3. QUININE SULFATE [Concomitant]
     Dosage: HS - AT BEDTIME
     Route: 048
  4. AVANDAMET [Concomitant]
     Dosage: STRENGHT: 4MG/500MG TABLET
     Route: 048
  5. EFFEXOR XR [Concomitant]
     Route: 048
  6. ASPIRIN [Concomitant]
     Route: 048
  7. BENADRYL [Concomitant]
     Dosage: HS - AT BEDTIME
     Route: 048
  8. NORVASC [Concomitant]
     Indication: HYPERTENSION
     Route: 048
  9. NEXIUM [Concomitant]
     Indication: DUODENOGASTRIC REFLUX
     Route: 048
  10. TYLENOL [Concomitant]
     Indication: PAIN
     Route: 048

REACTIONS (5)
  - AORTIC ANEURYSM [None]
  - CONDITION AGGRAVATED [None]
  - INFLUENZA LIKE ILLNESS [None]
  - MUSCLE SPASMS [None]
  - NASOPHARYNGITIS [None]
